FAERS Safety Report 11213726 (Version 1)
Quarter: 2015Q2

REPORT INFORMATION
  Report Type: Spontaneous
  Country: GB (occurrence: GB)
  Receive Date: 20150623
  Receipt Date: 20150623
  Transmission Date: 20150821
  Serious: Yes (Other)
  Sender: FDA-Public Use
  Company Number: GB-AMEDRA PHARMACEUTICALS LLC-2015AMD00098

PATIENT
  Age: 8 Year

DRUGS (2)
  1. LIDOCAINE. [Suspect]
     Active Substance: LIDOCAINE
     Dosage: 7 MG/KG, ONCE
     Route: 050
  2. EPINEPHRINE. [Suspect]
     Active Substance: EPINEPHRINE
     Indication: ANALGESIC THERAPY
     Dosage: 1:80,000, ONCE
     Route: 050

REACTIONS (1)
  - Apnoea [Recovered/Resolved]
